FAERS Safety Report 5325863-7 (Version None)
Quarter: 2007Q2

REPORT INFORMATION
  Report Type: 
  Country: None (occurrence: None)
  Receive Date: 20070510
  Receipt Date: 20070425
  Transmission Date: 20071010
  Serious: Yes (Death)
  Sender: FDA-Public Use
  Company Number: 121

PATIENT
  Sex: Female

DRUGS (1)
  1. FAZACLO 100MG ODT  AVANIR PHARMACEUTICALS [Suspect]
     Dosage: 500 MG PO DAILY
     Route: 048
     Dates: start: 20050105, end: 20070401

REACTIONS (1)
  - DEATH [None]
